FAERS Safety Report 17850992 (Version 1)
Quarter: 2020Q2

REPORT INFORMATION
  Report Type: Other
  Country: IT (occurrence: IT)
  Receive Date: 20200602
  Receipt Date: 20200602
  Transmission Date: 20200714
  Serious: Yes (Other)
  Sender: FDA-Public Use
  Company Number: IT-APOTEX-2020AP011663

PATIENT
  Age: 15 Year
  Sex: Female

DRUGS (2)
  1. PAROXETINE HYDROCHLORIDE. [Suspect]
     Active Substance: PAROXETINE HYDROCHLORIDE
     Indication: DEPRESSION
     Dosage: 10 MG, QD
     Route: 065
     Dates: start: 20191112, end: 20191117
  2. PLASIL                             /00041901/ [Suspect]
     Active Substance: METOCLOPRAMIDE
     Indication: NAUSEA
     Dosage: 2 DF, QD
     Route: 048
     Dates: start: 20191116, end: 20191117

REACTIONS (8)
  - Torticollis [Recovering/Resolving]
  - Dystonia [Recovering/Resolving]
  - Tremor [Recovering/Resolving]
  - Agitation [Recovering/Resolving]
  - Vision blurred [Recovering/Resolving]
  - Ligament sprain [Recovering/Resolving]
  - Motor dysfunction [Recovering/Resolving]
  - Oculogyric crisis [Recovering/Resolving]

NARRATIVE: CASE EVENT DATE: 20191117
